FAERS Safety Report 22020888 (Version 1)
Quarter: 2023Q1

REPORT INFORMATION
  Report Type: Spontaneous
  Country: PT (occurrence: None)
  Receive Date: 20230222
  Receipt Date: 20230222
  Transmission Date: 20230417
  Serious: Yes (Hospitalization, Other)
  Sender: FDA-Public Use
  Company Number: 2023A041239

PATIENT

DRUGS (1)
  1. IMFINZI [Suspect]
     Active Substance: DURVALUMAB
     Route: 042

REACTIONS (5)
  - IIIrd nerve disorder [Unknown]
  - Toxicity to various agents [Unknown]
  - Pneumonitis [Unknown]
  - Hepatitis [Unknown]
  - Myocarditis [Unknown]
